FAERS Safety Report 4773138-7 (Version None)
Quarter: 2005Q3

REPORT INFORMATION
  Report Type: 
  Country: None (occurrence: None)
  Receive Date: 20050915
  Receipt Date: 20050915
  Transmission Date: 20060218
  Serious: Yes (Hospitalization)
  Sender: FDA-Public Use
  Company Number: None

PATIENT
  Age: 80 Year
  Sex: Male
  Weight: 90 kg

DRUGS (6)
  1. LOVENOX [Suspect]
     Indication: MITRAL VALVE REPLACEMENT
     Dosage: 80MG  DAILY  SQ
     Route: 058
  2. COUMADIN [Suspect]
     Indication: MITRAL VALVE REPLACEMENT
     Dosage: 7.5MG   DAILY  PO
     Route: 048
  3. ACCUPRIL [Concomitant]
  4. PROSCAR [Concomitant]
  5. METOPROLOL [Concomitant]
  6. GEMFIBROZIL [Concomitant]

REACTIONS (5)
  - CONFUSIONAL STATE [None]
  - DRUG INTERACTION [None]
  - INTERNATIONAL NORMALISED RATIO INCREASED [None]
  - SOMNOLENCE [None]
  - URINARY TRACT INFECTION [None]
